FAERS Safety Report 12869427 (Version 1)
Quarter: 2016Q4

REPORT INFORMATION
  Report Type: Spontaneous
  Country: US (occurrence: US)
  Receive Date: 20161020
  Receipt Date: 20161020
  Transmission Date: 20170207
  Serious: Yes (Other)
  Sender: FDA-Public Use
  Company Number: None

PATIENT
  Age: 62 Year
  Sex: Female
  Weight: 55.8 kg

DRUGS (4)
  1. BUPROPRION SR [Concomitant]
     Active Substance: BUPROPION
  2. LEVOFLOXACIN 500 MG [Suspect]
     Active Substance: LEVOFLOXACIN
     Indication: UPPER RESPIRATORY TRACT INFECTION
     Dosage: ?          QUANTITY:1 TABLET(S);?
     Route: 048
     Dates: start: 20161012, end: 20161019
  3. MONTELUKAST [Concomitant]
     Active Substance: MONTELUKAST SODIUM
  4. VITAMIN C [Concomitant]
     Active Substance: ASCORBIC ACID

REACTIONS (7)
  - Dizziness [None]
  - Palpitations [None]
  - Headache [None]
  - Chest pain [None]
  - Weight bearing difficulty [None]
  - Arthralgia [None]
  - Arthropathy [None]

NARRATIVE: CASE EVENT DATE: 20161018
